FAERS Safety Report 9094262 (Version 2)
Quarter: 2013Q2

REPORT INFORMATION
  Report Type: Spontaneous
  Country: US (occurrence: US)
  Receive Date: 20130219
  Receipt Date: 20130617
  Transmission Date: 20140414
  Serious: Yes (Hospitalization)
  Sender: FDA-Public Use
  Company Number: US-BAYER-2013-019695

PATIENT
  Age: 19 Year
  Sex: Female

DRUGS (8)
  1. YAZ [Suspect]
  2. YASMIN [Suspect]
  3. OCELLA [Suspect]
  4. FLEXERIL [Concomitant]
     Dosage: AS NEEDED
  5. NAPROXEN [Concomitant]
     Dosage: UNK UNK, PRN
  6. LORTAB [Concomitant]
     Dosage: AS NEEDED
  7. ORTHO TRICYCLEN [Concomitant]
  8. HYDROCODONE/ACETAMINOPHEN [Concomitant]

REACTIONS (2)
  - Cerebrovascular accident [Recovered/Resolved]
  - Cerebellar infarction [Recovered/Resolved]
